FAERS Safety Report 5103263-2 (Version None)
Quarter: 2006Q3

REPORT INFORMATION
  Report Type: 
  Country: None (occurrence: None)
  Receive Date: 20060913
  Receipt Date: 20051230
  Transmission Date: 20061208
  Serious: Yes (Hospitalization, Other)
  Sender: FDA-Public Use
  Company Number: 2006UW00031

PATIENT
  Age: 60 Year
  Sex: Female
  Weight: 65.8 kg

DRUGS (18)
  1. ARIMIDEX [Suspect]
     Indication: BREAST CANCER
     Route: 048
     Dates: start: 20030101
  2. TAMOXIFEN CITRATE [Concomitant]
  3. FOSAMAX [Concomitant]
     Dates: start: 20010601, end: 20050301
  4. CELEBREX [Concomitant]
     Indication: ARTHRITIS
  5. CELEBREX [Concomitant]
     Indication: MYELOPATHY
  6. EFFEXOR [Concomitant]
     Indication: HOT FLUSH
     Route: 048
  7. MEGESTROL [Concomitant]
     Indication: HOT FLUSH
  8. HYDROCHLOROTHIAZIDE [Concomitant]
     Indication: HYPERTENSION
  9. LISINOPRIL [Concomitant]
  10. CARISOPRODOL [Concomitant]
     Indication: PAIN
  11. NORCO [Concomitant]
     Dosage: 10/325
  12. VICODIN [Concomitant]
  13. ASPIRIN [Concomitant]
  14. CALCIUM GLUCONATE [Concomitant]
  15. CENTRUM SILVER [Concomitant]
  16. ASCORBIC ACID [Concomitant]
  17. GLUCOSAMINE AND CHONDROITIN [Concomitant]
     Indication: ARTHRITIS
  18. ZOMETA [Concomitant]
     Route: 042

REACTIONS (20)
  - ARTERIAL OCCLUSIVE DISEASE [None]
  - ARTHRALGIA [None]
  - CHEST PAIN [None]
  - CORONARY ARTERY DISEASE [None]
  - FALL [None]
  - FOOT FRACTURE [None]
  - HOT FLUSH [None]
  - JOINT SPRAIN [None]
  - JOINT SWELLING [None]
  - LIGAMENT RUPTURE [None]
  - LUMBAR SPINAL STENOSIS [None]
  - OEDEMA PERIPHERAL [None]
  - OSTEOPOROSIS [None]
  - PAIN [None]
  - PNEUMONIA [None]
  - SPINAL COMPRESSION FRACTURE [None]
  - SPINAL OSTEOARTHRITIS [None]
  - SWELLING [None]
  - THROMBOSIS [None]
  - WRIST FRACTURE [None]
